FAERS Safety Report 25723994 (Version 1)
Quarter: 2025Q3

REPORT INFORMATION
  Report Type: Report from Study
  Country: US (occurrence: US)
  Receive Date: 20250826
  Receipt Date: 20250826
  Transmission Date: 20251021
  Serious: Yes (Other)
  Sender: ABBVIE
  Company Number: US-ABBVIE-6428098

PATIENT
  Age: 39 Year
  Sex: Female

DRUGS (2)
  1. RINVOQ [Suspect]
     Active Substance: UPADACITINIB
     Indication: Rheumatoid arthritis
     Dosage: STRENGTH: 15 MG
     Route: 048
     Dates: start: 20240127, end: 202506
  2. RINVOQ [Suspect]
     Active Substance: UPADACITINIB
     Indication: Rheumatoid arthritis
     Dosage: STRENGTH: 15 MG, MOST RECENT RINVOQ DOSE 12 AUG 2025
     Route: 048
     Dates: start: 202507

REACTIONS (6)
  - Hysterectomy [Unknown]
  - Appendicectomy [Unknown]
  - Oophoritis [Unknown]
  - Arthritis [Not Recovered/Not Resolved]
  - Post procedural complication [Unknown]
  - Musculoskeletal disorder [Unknown]

NARRATIVE: CASE EVENT DATE: 20250101
